FAERS Safety Report 7752338-8 (Version None)
Quarter: 2011Q3

REPORT INFORMATION
  Report Type: 
  Country: None (occurrence: None)
  Receive Date: 20110915
  Receipt Date: 20110901
  Transmission Date: 20111222
  Serious: Yes (Other)
  Sender: FDA-Public Use
  Company Number: CA-ELI_LILLY_AND_COMPANY-CA201109000161

PATIENT
  Sex: Male

DRUGS (7)
  1. ZYPREXA [Suspect]
     Dosage: 5 MG, TID
  2. ASPIRIN [Concomitant]
  3. ROBAXIN [Concomitant]
  4. LITHIUM [Concomitant]
  5. ZYPREXA [Suspect]
     Indication: SCHIZOPHRENIA
     Dosage: 5 MG, UNKNOWN
  6. LUVOX [Concomitant]
  7. ATIVAN [Concomitant]

REACTIONS (9)
  - DIABETIC NEPHROPATHY [None]
  - HAEMOGLOBIN DECREASED [None]
  - DIABETIC NEUROPATHY [None]
  - DIABETES MELLITUS [None]
  - BLOOD TRIGLYCERIDES INCREASED [None]
  - RENAL FAILURE CHRONIC [None]
  - HAEMATOCRIT DECREASED [None]
  - RED BLOOD CELL COUNT DECREASED [None]
  - WHITE BLOOD CELL COUNT INCREASED [None]
